FAERS Safety Report 7525741-9 (Version None)
Quarter: 2011Q2

REPORT INFORMATION
  Report Type: 
  Country: None (occurrence: None)
  Receive Date: 20110606
  Receipt Date: 20110524
  Transmission Date: 20111010
  Serious: Yes (Hospitalization)
  Sender: FDA-Public Use
  Company Number: PHHY2011EC48161

PATIENT
  Sex: Female

DRUGS (2)
  1. DIOVAN HCT [Suspect]
     Indication: HYPERTENSION
     Dosage: 1 DF (160 MG VALSARTAN/25 MG HYDROCHLOROTHIAZIDE)
     Route: 048
     Dates: start: 20090101
  2. ASPIRIN [Concomitant]
     Dosage: 5000 MG, QD
     Route: 048

REACTIONS (1)
  - PARALYSIS [None]
